FAERS Safety Report 18140097 (Version 1)
Quarter: 2020Q3

REPORT INFORMATION
  Report Type: Spontaneous
  Country: US (occurrence: US)
  Receive Date: 20200812
  Receipt Date: 20200812
  Transmission Date: 20201103
  Serious: Yes (Other)
  Sender: FDA-Public Use
  Company Number: US-PFIZER INC-2020309601

PATIENT
  Sex: Female

DRUGS (1)
  1. DEPO?PROVERA [Suspect]
     Active Substance: MEDROXYPROGESTERONE ACETATE
     Indication: CONTRACEPTION
     Dosage: UNK

REACTIONS (6)
  - Bipolar disorder [Unknown]
  - Vaginal haemorrhage [Unknown]
  - Alopecia [Unknown]
  - Menorrhagia [Unknown]
  - Memory impairment [Unknown]
  - Mood swings [Unknown]
